FAERS Safety Report 12579476 (Version 1)
Quarter: 2016Q3

REPORT INFORMATION
  Report Type: Spontaneous
  Country: US (occurrence: US)
  Receive Date: 20160721
  Receipt Date: 20160721
  Transmission Date: 20161109
  Serious: Yes (Life-Threatening, Hospitalization)
  Sender: FDA-Public Use
  Company Number: US-COVIS PHARMA S.A.R.L.-2016COV00058

PATIENT
  Age: 16 Year
  Sex: Male
  Weight: 87.98 kg

DRUGS (5)
  1. LETAIRIS [Concomitant]
     Active Substance: AMBRISENTAN
  2. LANOXIN [Suspect]
     Active Substance: DIGOXIN
  3. SILDENAFIL. [Concomitant]
     Active Substance: SILDENAFIL
  4. COUMADIN [Concomitant]
     Active Substance: WARFARIN SODIUM
  5. ORENITRAM [Suspect]
     Active Substance: TREPROSTINIL
     Indication: PULMONARY ARTERIAL HYPERTENSION
     Dosage: 8 MG, 2X/DAY
     Route: 048
     Dates: start: 20141103, end: 2016

REACTIONS (7)
  - Endotracheal intubation [Unknown]
  - Pulmonary arterial hypertension [Unknown]
  - Right ventricular failure [Unknown]
  - Vomiting [Not Recovered/Not Resolved]
  - Presyncope [None]
  - Malaise [Unknown]
  - Nausea [Unknown]

NARRATIVE: CASE EVENT DATE: 201605
